FAERS Safety Report 8200941-3 (Version None)
Quarter: 2012Q1

REPORT INFORMATION
  Report Type: 
  Country: None (occurrence: None)
  Receive Date: 20120312
  Receipt Date: 20110909
  Transmission Date: 20120608
  Serious: No
  Sender: FDA-Public Use
  Company Number: US-ABBOTT-11P-163-0852824-00

PATIENT
  Sex: Female

DRUGS (2)
  1. LUPRON DEPOT [Suspect]
     Indication: ADENOMA BENIGN
     Dates: start: 20110801
  2. UNKNOWN PAIN MEDICATION [Suspect]
     Indication: ORGAN DONOR
     Dates: start: 20110801

REACTIONS (1)
  - NAUSEA [None]
